FAERS Safety Report 11822433 (Version 1)
Quarter: 2015Q4

REPORT INFORMATION
  Report Type: Spontaneous
  Country: DE (occurrence: DE)
  Receive Date: 20151210
  Receipt Date: 20151210
  Transmission Date: 20160305
  Serious: Yes (Death, Other)
  Sender: FDA-Public Use
  Company Number: DE-PFIZER INC-2015179493

PATIENT
  Sex: Female
  Weight: .83 kg

DRUGS (6)
  1. TARDYFERON [Concomitant]
     Active Substance: FERROUS SULFATE\FOLIC ACID
     Indication: ANAEMIA
     Dosage: 1 DF, 2X/DAY
     Route: 064
     Dates: start: 20150528
  2. FERINJECT [Concomitant]
     Active Substance: FERRIC CARBOXYMALTOSE
     Indication: ANAEMIA
     Dosage: 50 MG 5X10ML 2X INJECTION 1X
     Route: 064
     Dates: start: 20150716
  3. FERINJECT [Concomitant]
     Active Substance: FERRIC CARBOXYMALTOSE
     Dosage: 50 MG 5X10ML 2X INJECTION 1X
     Route: 064
     Dates: start: 20150729
  4. DEPO-CLINOVIR [Suspect]
     Active Substance: MEDROXYPROGESTERONE ACETATE
     Indication: CONTRACEPTION
     Dosage: UNK, EVERY 3 MONTHS
     Route: 064
     Dates: start: 201411
  5. FEMIBION /07499601/ [Concomitant]
     Dosage: UNK
     Route: 064
     Dates: start: 20150522
  6. MONURIL [Concomitant]
     Active Substance: FOSFOMYCIN SODIUM
     Indication: URINARY TRACT INFECTION
     Dosage: UNK UNK, SINGLE
     Route: 064
     Dates: start: 20150616

REACTIONS (3)
  - Maternal exposure during pregnancy [Unknown]
  - Toxoplasmosis [Fatal]
  - Premature baby [Unknown]

NARRATIVE: CASE EVENT DATE: 20150822
